FAERS Safety Report 16377831 (Version 1)
Quarter: 2019Q2

REPORT INFORMATION
  Report Type: Spontaneous
  Country: PT (occurrence: PT)
  Receive Date: 20190531
  Receipt Date: 20190531
  Transmission Date: 20190711
  Serious: Yes (Other)
  Sender: FDA-Public Use
  Company Number: PT-INCYTE CORPORATION-2019IN005489

PATIENT

DRUGS (3)
  1. JAKAVI [Suspect]
     Active Substance: RUXOLITINIB
     Indication: MYELOFIBROSIS
     Dosage: 15 MG, BID (12/12H)
     Route: 065
     Dates: start: 201809
  2. PREDNISONE. [Suspect]
     Active Substance: PREDNISONE
     Indication: PRODUCT USED FOR UNKNOWN INDICATION
     Dosage: 20 MG, UNK
     Route: 065
  3. JAKAVI [Suspect]
     Active Substance: RUXOLITINIB
     Dosage: 5 MG, BID (12/12H)
     Route: 065

REACTIONS (4)
  - Splenomegaly [Recovered/Resolved]
  - Decreased appetite [Unknown]
  - Intra-abdominal haematoma [Unknown]
  - Platelet count decreased [Unknown]
